FAERS Safety Report 8300135-7 (Version None)
Quarter: 2012Q2

REPORT INFORMATION
  Report Type: 
  Country: None (occurrence: None)
  Receive Date: 20120420
  Receipt Date: 20120417
  Transmission Date: 20120825
  Serious: Yes (Other)
  Sender: FDA-Public Use
  Company Number: US-PFIZER INC-2012069109

PATIENT
  Sex: Female

DRUGS (4)
  1. OMEPRAZOLE [Concomitant]
     Dosage: 20 MG, 1X/DAY
  2. EFFEXOR XR [Suspect]
     Indication: HOT FLUSH
     Dosage: 150 MG, 1X/DAY
     Route: 048
     Dates: start: 20070101
  3. WARFARIN [Concomitant]
     Dosage: 5 MG, 1X/DAY
  4. TOPAMAX [Concomitant]
     Dosage: 200 MG, 2X/DAY

REACTIONS (1)
  - ASTHMA [None]
